FAERS Safety Report 5123570-7 (Version None)
Quarter: 2006Q4

REPORT INFORMATION
  Report Type: 
  Country: None (occurrence: None)
  Receive Date: 20061010
  Receipt Date: 20061002
  Transmission Date: 20070319
  Serious: Yes (Hospitalization)
  Sender: FDA-Public Use
  Company Number: US-JNJFOC-20061000690

PATIENT
  Sex: Male
  Weight: 72.58 kg

DRUGS (3)
  1. DURAGESIC-100 [Suspect]
     Indication: PAIN
     Route: 062
     Dates: start: 19960101
  2. MORPHINE [Concomitant]
     Indication: PAIN
  3. OXYCODONE HCL [Concomitant]
     Indication: PAIN

REACTIONS (2)
  - HYPOAESTHESIA [None]
  - WEIGHT DECREASED [None]
